FAERS Safety Report 5643693-3 (Version None)
Quarter: 2008Q1

REPORT INFORMATION
  Report Type: 
  Country: None (occurrence: None)
  Receive Date: 20080228
  Receipt Date: 20080218
  Transmission Date: 20080703
  Serious: Yes (Death, Hospitalization)
  Sender: FDA-Public Use
  Company Number: DE-ABBOTT-08P-062-0434736-00

PATIENT
  Sex: Male
  Weight: 62 kg

DRUGS (4)
  1. HUMIRA [Suspect]
     Indication: ANKYLOSING SPONDYLITIS
     Route: 058
     Dates: start: 20060703
  2. HUMIRA [Suspect]
     Route: 058
     Dates: end: 20080123
  3. INDOMETHACIN [Concomitant]
     Indication: ANKYLOSING SPONDYLITIS
     Dates: start: 20001201
  4. TILIDINE HYDROCHLORIDE [Concomitant]
     Indication: ANKYLOSING SPONDYLITIS
     Dosage: 5 X 20 DROPS

REACTIONS (2)
  - AORTIC ANEURYSM [None]
  - POST PROCEDURAL COMPLICATION [None]
